FAERS Safety Report 15976434 (Version 3)
Quarter: 2019Q1

REPORT INFORMATION
  Report Type: Other
  Country: CA (occurrence: CA)
  Receive Date: 20190218
  Receipt Date: 20190315
  Transmission Date: 20190418
  Serious: Yes (Other)
  Sender: FDA-Public Use
  Company Number: CA-PFIZER INC-2019065309

PATIENT
  Age: 9 Year
  Sex: Female

DRUGS (5)
  1. ETOPOSIDE. [Suspect]
     Active Substance: ETOPOSIDE
     Indication: GERM CELL CANCER
     Dosage: UNK
     Route: 065
  2. CARBOPLATIN. [Suspect]
     Active Substance: CARBOPLATIN
     Indication: GERM CELL CANCER
     Dosage: UNK
     Route: 065
  3. CISPLATIN. [Suspect]
     Active Substance: CISPLATIN
     Indication: GERM CELL CANCER
     Dosage: UNK
     Route: 065
  4. IFOSFAMIDE. [Suspect]
     Active Substance: IFOSFAMIDE
     Indication: GERM CELL CANCER
     Dosage: UNK
     Route: 065
  5. VERRUBLEN [Suspect]
     Active Substance: BLEOMYCIN SULFATE
     Indication: INTRACRANIAL GERM CELL TUMOUR
     Dosage: UNK
     Route: 065

REACTIONS (3)
  - Deafness [Unknown]
  - Renal impairment [Recovering/Resolving]
  - Pulmonary function test decreased [Unknown]
